FAERS Safety Report 6158681-0 (Version None)
Quarter: 2009Q2

REPORT INFORMATION
  Report Type: 
  Country: None (occurrence: None)
  Receive Date: 20090417
  Receipt Date: 20090408
  Transmission Date: 20091009
  Serious: Yes (Congenital Anomaly, Other)
  Sender: FDA-Public Use
  Company Number: A0683109A

PATIENT
  Sex: Male
  Weight: 3 kg

DRUGS (6)
  1. PAXIL [Suspect]
     Indication: DEPRESSION
     Dosage: 20MG PER DAY
     Dates: start: 20010713, end: 20010901
  2. VITAMIN TAB [Concomitant]
  3. NEXIUM [Concomitant]
     Dates: start: 20010713
  4. IRON [Concomitant]
  5. MOTRIN [Concomitant]
  6. BACTRIM DS [Concomitant]
     Dates: start: 20010831

REACTIONS (9)
  - AORTIC VALVE INCOMPETENCE [None]
  - BICUSPID AORTIC VALVE [None]
  - CARDIAC MURMUR [None]
  - CARDIAC VALVE DISEASE [None]
  - COARCTATION OF THE AORTA [None]
  - CONGENITAL AORTIC STENOSIS [None]
  - DRUG EXPOSURE DURING PREGNANCY [None]
  - MITRAL VALVE STENOSIS [None]
  - VENTRICULAR HYPERTROPHY [None]
